FAERS Safety Report 18474386 (Version 2)
Quarter: 2020Q4

REPORT INFORMATION
  Report Type: Report from Study
  Country: MX (occurrence: MX)
  Receive Date: 20201106
  Receipt Date: 20201107
  Transmission Date: 20210114
  Serious: Yes (Other)
  Sender: FDA-Public Use
  Company Number: NVSC2020MX295989

PATIENT
  Sex: Male
  Weight: 102 kg

DRUGS (2)
  1. ATORVASTATIN [Concomitant]
     Active Substance: ATORVASTATIN
     Indication: PRODUCT USED FOR UNKNOWN INDICATION
     Dosage: 40 MG, QD
     Route: 048
  2. EXFORGE HCT [Suspect]
     Active Substance: AMLODIPINE BESYLATE\HYDROCHLOROTHIAZIDE\VALSARTAN
     Indication: CARDIAC DISORDER
     Dosage: 1.5 DF, QD
     Route: 048

REACTIONS (6)
  - Product prescribing error [Unknown]
  - Product use in unapproved indication [Unknown]
  - COVID-19 [Unknown]
  - Anosmia [Unknown]
  - Wrong technique in product usage process [Unknown]
  - Illness [Unknown]
